FAERS Safety Report 5706063-5 (Version None)
Quarter: 2008Q2

REPORT INFORMATION
  Report Type: 
  Country: None (occurrence: None)
  Receive Date: 20080415
  Receipt Date: 20080407
  Transmission Date: 20081010
  Serious: Yes (Other)
  Sender: FDA-Public Use
  Company Number: GB-ASTRAZENECA-2007GB01058

PATIENT
  Age: 59 Year
  Sex: Female
  Weight: 47 kg

DRUGS (3)
  1. TENORMIN [Suspect]
     Dosage: 50 MG
     Route: 048
     Dates: start: 20060801, end: 20060801
  2. BENDROFLUAZIDE [Concomitant]
     Dosage: 2.5 MG
     Route: 048
     Dates: end: 20070501
  3. OLMESARTAN MEDOXOMIL [Concomitant]
     Dosage: 10 MG
     Route: 048
     Dates: end: 20070501

REACTIONS (3)
  - HEART RATE DECREASED [None]
  - MALAISE [None]
  - MEDICATION ERROR [None]
